FAERS Safety Report 7449604-2 (Version None)
Quarter: 2011Q2

REPORT INFORMATION
  Report Type: 
  Country: None (occurrence: None)
  Receive Date: 20110502
  Receipt Date: 20110419
  Transmission Date: 20111010
  Serious: Yes (Life-Threatening)
  Sender: FDA-Public Use
  Company Number: US-BAYER-2011-035180

PATIENT
  Sex: Female

DRUGS (1)
  1. AVELOX [Suspect]
     Route: 048

REACTIONS (1)
  - ANAPHYLACTIC SHOCK [None]
